FAERS Safety Report 24425176 (Version 2)
Quarter: 2024Q4

REPORT INFORMATION
  Report Type: Spontaneous
  Country: US (occurrence: US)
  Receive Date: 20241010
  Receipt Date: 20241223
  Transmission Date: 20250115
  Serious: No
  Sender: NOVARTIS
  Company Number: US-002147023-NVSC2024US199808

PATIENT
  Age: 63 Year
  Sex: Male

DRUGS (1)
  1. PLUVICTO [Suspect]
     Active Substance: LUTETIUM LU-177 VIPIVOTIDE TETRAXETAN
     Indication: Prostate cancer metastatic
     Dosage: UNK
     Route: 042
     Dates: start: 20240208, end: 20241029

REACTIONS (2)
  - General physical health deterioration [Unknown]
  - Liver function test decreased [Recovered/Resolved]

NARRATIVE: CASE EVENT DATE: 20240730
